FAERS Safety Report 17655185 (Version 1)
Quarter: 2020Q2

REPORT INFORMATION
  Report Type: Spontaneous
  Country: US (occurrence: US)
  Receive Date: 20200409
  Receipt Date: 20200409
  Transmission Date: 20200713
  Serious: Yes (Hospitalization)
  Sender: FDA-Public Use
  Company Number: None

PATIENT
  Age: 69 Year
  Sex: Male

DRUGS (1)
  1. ENTYVIO [Suspect]
     Active Substance: VEDOLIZUMAB
     Dosage: ?          OTHER FREQUENCY:OTHER;?
     Route: 058
     Dates: start: 201904, end: 202004

REACTIONS (2)
  - Disease complication [None]
  - Drug ineffective [None]

NARRATIVE: CASE EVENT DATE: 20200409
